FAERS Safety Report 5909332-9 (Version None)
Quarter: 2008Q4

REPORT INFORMATION
  Report Type: 
  Country: None (occurrence: None)
  Receive Date: 20081002
  Receipt Date: 20080924
  Transmission Date: 20090506
  Serious: Yes (Death)
  Sender: FDA-Public Use
  Company Number: WAES 0808GBR00095

PATIENT
  Age: 64 Year
  Sex: Male

DRUGS (8)
  1. JANUVIA [Suspect]
     Indication: TYPE 2 DIABETES MELLITUS
     Dosage: 100 MG/DAILY, PO
     Route: 048
     Dates: start: 20080630, end: 20080816
  2. ALBUTEROL SULFATE [Concomitant]
  3. ASPIRIN [Concomitant]
  4. FLUTICASONE PROPIONATE (+) SALMETEROL XI [Concomitant]
  5. IPRATROPIUM BROMIDE [Concomitant]
  6. METFORMIN HCL [Concomitant]
  7. PRAVASTATIN SODIUM [Concomitant]
  8. TELMISARTAN [Concomitant]

REACTIONS (1)
  - CARDIAC ARREST [None]
